FAERS Safety Report 4579309-7 (Version None)
Quarter: 2005Q1

REPORT INFORMATION
  Report Type: 
  Country: None (occurrence: None)
  Receive Date: 20050209
  Receipt Date: 20050127
  Transmission Date: 20050727
  Serious: Yes (Other)
  Sender: FDA-Public Use
  Company Number: 2004108850

PATIENT
  Sex: Female
  Weight: 72.5755 kg

DRUGS (3)
  1. BEXTRA [Suspect]
     Indication: MONARTHRITIS
     Dosage: 10 MG (10 MG, 1 IN 1 D), ORAL
     Route: 048
     Dates: start: 20041101, end: 20041203
  2. MONTELUKAST SODIUM(MONTELUKAST SODIUM) [Concomitant]
  3. OMESARTAN MEDOXOMIL (OLMESARTAN MEDOXOMIL) [Concomitant]

REACTIONS (7)
  - BLOOD PRESSURE INCREASED [None]
  - BLOOD PRESSURE SYSTOLIC INCREASED [None]
  - DECREASED APPETITE [None]
  - DIZZINESS [None]
  - FEELING ABNORMAL [None]
  - GAIT DISTURBANCE [None]
  - VISUAL DISTURBANCE [None]
